FAERS Safety Report 12230403 (Version 2)
Quarter: 2016Q2

REPORT INFORMATION
  Report Type: Spontaneous
  Country: US (occurrence: US)
  Receive Date: 20160401
  Receipt Date: 20160506
  Transmission Date: 20160815
  Serious: No
  Sender: FDA-Public Use
  Company Number: US-JNJFOC-20160314886

PATIENT
  Sex: Female
  Weight: 81.65 kg

DRUGS (1)
  1. DURAGESIC [Suspect]
     Active Substance: FENTANYL
     Indication: PRODUCT USED FOR UNKNOWN INDICATION
     Route: 062
     Dates: start: 2006

REACTIONS (3)
  - Sensory loss [Not Recovered/Not Resolved]
  - Malaise [Not Recovered/Not Resolved]
  - Bedridden [Not Recovered/Not Resolved]
